FAERS Safety Report 16116781 (Version 2)
Quarter: 2019Q1

REPORT INFORMATION
  Report Type: Report from Study
  Country: US (occurrence: US)
  Receive Date: 20190326
  Receipt Date: 20190328
  Transmission Date: 20190418
  Serious: No
  Sender: FDA-Public Use
  Company Number: PHEH2019US013148

PATIENT
  Age: 44 Year
  Sex: Female
  Weight: 77.98 kg

DRUGS (1)
  1. GLATIRAMER ACETATE. [Suspect]
     Active Substance: GLATIRAMER ACETATE
     Indication: PRODUCT USED FOR UNKNOWN INDICATION
     Dosage: 40 MG, TIW (ROTATING SITES) (INJECTIONS)
     Route: 058
     Dates: start: 201811, end: 20190301

REACTIONS (8)
  - Drug hypersensitivity [Recovering/Resolving]
  - Injection site pruritus [Recovering/Resolving]
  - Dyspnoea [Recovering/Resolving]
  - Injection site erythema [Recovering/Resolving]
  - Anxiety [Recovering/Resolving]
  - Palpitations [Recovering/Resolving]
  - Chest pain [Recovering/Resolving]
  - Injection site swelling [Recovering/Resolving]

NARRATIVE: CASE EVENT DATE: 201901
